FAERS Safety Report 14479919 (Version 9)
Quarter: 2021Q2

REPORT INFORMATION
  Report Type: Report from Study
  Country: US (occurrence: US)
  Receive Date: 20180202
  Receipt Date: 20210503
  Transmission Date: 20210716
  Serious: Yes (Other)
  Sender: FDA-Public Use
  Company Number: US-JAZZ-2018-US-001929

PATIENT
  Age: 23 Year
  Sex: Female

DRUGS (13)
  1. DEPO?SUBQ PROVERA [Concomitant]
     Active Substance: MEDROXYPROGESTERONE ACETATE
     Indication: PRODUCT USED FOR UNKNOWN INDICATION
     Dosage: UNK
     Dates: start: 20141118
  2. EXCEDRIN MIGRAINE [Concomitant]
     Active Substance: ACETAMINOPHEN\ASPIRIN\CAFFEINE
     Indication: PRODUCT USED FOR UNKNOWN INDICATION
     Dosage: UNK
     Dates: start: 20141118
  3. XYREM [Suspect]
     Active Substance: SODIUM OXYBATE
     Indication: CATAPLEXY
     Dosage: 2.25 G, BID
     Route: 048
     Dates: start: 201501, end: 201507
  4. ACETAMINOPHEN. [Concomitant]
     Active Substance: ACETAMINOPHEN
     Indication: PRODUCT USED FOR UNKNOWN INDICATION
     Dosage: UNK
     Dates: start: 20141118
  5. NARATRIPTAN [Concomitant]
     Active Substance: NARATRIPTAN HYDROCHLORIDE
     Indication: PRODUCT USED FOR UNKNOWN INDICATION
     Dosage: UNK
     Dates: start: 201801
  6. TOPAMAX [Concomitant]
     Active Substance: TOPIRAMATE
     Indication: PRODUCT USED FOR UNKNOWN INDICATION
     Dosage: UNK
     Dates: start: 20171227
  7. PROPRANOLOL [Concomitant]
     Active Substance: PROPRANOLOL HYDROCHLORIDE
     Indication: PRODUCT USED FOR UNKNOWN INDICATION
     Dosage: UNK
     Dates: start: 20140901, end: 20150123
  8. XYREM [Suspect]
     Active Substance: SODIUM OXYBATE
     Indication: NARCOLEPSY
     Dosage: 1.5 G, BID
     Route: 048
     Dates: start: 201411, end: 201501
  9. XYREM [Suspect]
     Active Substance: SODIUM OXYBATE
     Dosage: 2 G, QD
     Route: 048
     Dates: start: 201507, end: 2015
  10. XYREM [Suspect]
     Active Substance: SODIUM OXYBATE
     Dosage: 2.5 G, QD
     Route: 048
     Dates: start: 201507, end: 2015
  11. DEXEDRINE [Concomitant]
     Active Substance: DEXTROAMPHETAMINE SULFATE
     Indication: PRODUCT USED FOR UNKNOWN INDICATION
     Dosage: UNK
     Dates: start: 20121101, end: 201508
  12. LIDOCAINE HCL [Concomitant]
     Active Substance: LIDOCAINE HYDROCHLORIDE
     Indication: PRODUCT USED FOR UNKNOWN INDICATION
     Dosage: UNK
     Dates: start: 20180130
  13. NICOTROL [Concomitant]
     Active Substance: NICOTINE
     Indication: PRODUCT USED FOR UNKNOWN INDICATION
     Dosage: UNK
     Dates: start: 201801

REACTIONS (12)
  - Feeling abnormal [Unknown]
  - Depression [Recovering/Resolving]
  - Sinusitis [Not Recovered/Not Resolved]
  - Hemiplegic migraine [Not Recovered/Not Resolved]
  - Coeliac disease [Unknown]
  - Anxiety [Unknown]
  - Migraine with aura [Not Recovered/Not Resolved]
  - Abdominal discomfort [Unknown]
  - Malaise [Unknown]
  - Cataplexy [Not Recovered/Not Resolved]
  - Gluten sensitivity [Unknown]
  - Paraesthesia [Unknown]

NARRATIVE: CASE EVENT DATE: 201511
